FAERS Safety Report 24788165 (Version 5)
Quarter: 2025Q2

REPORT INFORMATION
  Report Type: Report from Study
  Country: US (occurrence: US)
  Receive Date: 20241230
  Receipt Date: 20250619
  Transmission Date: 20250717
  Serious: No
  Sender: SUNOVION
  Company Number: US-SUMITOMO PHARMA SWITZERLAND GMBH-2024SPA005920

PATIENT

DRUGS (3)
  1. ORGOVYX [Suspect]
     Active Substance: RELUGOLIX
     Indication: Prostate cancer
     Route: 048
  2. ORGOVYX [Suspect]
     Active Substance: RELUGOLIX
     Dosage: 120 MG, QD
     Route: 048
     Dates: start: 20241104
  3. FLOMAX [Suspect]
     Active Substance: TAMSULOSIN HYDROCHLORIDE
     Indication: Product used for unknown indication
     Route: 065

REACTIONS (18)
  - Muscle atrophy [Unknown]
  - Decreased appetite [Unknown]
  - General physical condition abnormal [Unknown]
  - Feeling abnormal [Unknown]
  - Blood testosterone decreased [Unknown]
  - Skin irritation [Unknown]
  - Skin discomfort [Unknown]
  - Sensitive skin [Unknown]
  - Glycosylated haemoglobin abnormal [Unknown]
  - Hypotension [Unknown]
  - Oedema [Unknown]
  - Night sweats [Not Recovered/Not Resolved]
  - Blood glucose increased [Unknown]
  - Aspartate aminotransferase increased [Unknown]
  - Alanine aminotransferase increased [Unknown]
  - Hot flush [Recovered/Resolved]
  - Asthenia [Unknown]
  - Therapy interrupted [Unknown]

NARRATIVE: CASE EVENT DATE: 20250218
